FAERS Safety Report 4828242-1 (Version None)
Quarter: 2005Q4

REPORT INFORMATION
  Report Type: 
  Country: None (occurrence: None)
  Receive Date: 20051115
  Receipt Date: 20050525
  Transmission Date: 20060501
  Serious: No
  Sender: FDA-Public Use
  Company Number: US-BRISTOL-MYERS SQUIBB COMPANY-12982625

PATIENT
  Age: 28 Year
  Sex: Female
  Weight: 82 kg

DRUGS (4)
  1. SUSTIVA [Suspect]
     Route: 048
     Dates: end: 20050401
  2. COMBIVIR [Concomitant]
  3. PRENATAL VITAMINS [Concomitant]
     Dates: start: 20050418
  4. KALETRA [Concomitant]
     Dates: start: 20050401

REACTIONS (1)
  - PREGNANCY [None]
